FAERS Safety Report 8262062-3 (Version None)
Quarter: 2012Q2

REPORT INFORMATION
  Report Type: 
  Country: None (occurrence: None)
  Receive Date: 20120405
  Receipt Date: 20120326
  Transmission Date: 20120825
  Serious: Yes (Other)
  Sender: FDA-Public Use
  Company Number: PHHY2012DE026704

PATIENT
  Sex: Male

DRUGS (2)
  1. RASILEZ [Suspect]
     Indication: HYPERTENSION
     Dates: start: 20110101
  2. ASPIRIN [Concomitant]
     Indication: THROMBOSIS PROPHYLAXIS
     Dates: start: 20120301

REACTIONS (9)
  - DIZZINESS [None]
  - CERVICAL SPINAL STENOSIS [None]
  - BLOOD PRESSURE FLUCTUATION [None]
  - VISUAL IMPAIRMENT [None]
  - CEREBRAL INFARCTION [None]
  - BLINDNESS TRANSIENT [None]
  - NAUSEA [None]
  - LOSS OF CONSCIOUSNESS [None]
  - MUSCULAR WEAKNESS [None]
